FAERS Safety Report 7652443-0 (Version None)
Quarter: 2011Q3

REPORT INFORMATION
  Report Type: 
  Country: None (occurrence: None)
  Receive Date: 20110801
  Receipt Date: 20110801
  Transmission Date: 20111222
  Serious: Yes (Hospitalization, Other)
  Sender: FDA-Public Use
  Company Number: None

PATIENT
  Age: 75 Year
  Sex: Male
  Weight: 81 kg

DRUGS (1)
  1. AMIODARONE HCL [Suspect]
     Indication: ATRIAL FIBRILLATION
     Dosage: 200MG EVERY DAY PO
     Route: 048
     Dates: start: 20091113, end: 20110322

REACTIONS (8)
  - THYROIDITIS [None]
  - CHRONIC OBSTRUCTIVE PULMONARY DISEASE [None]
  - CHEST PAIN [None]
  - HEART RATE IRREGULAR [None]
  - DYSPNOEA [None]
  - CONDITION AGGRAVATED [None]
  - HYPERTHYROIDISM [None]
  - WEIGHT DECREASED [None]
